FAERS Safety Report 21635521 (Version 1)
Quarter: 2022Q4

REPORT INFORMATION
  Report Type: Spontaneous
  Country: US (occurrence: US)
  Receive Date: 20221123
  Receipt Date: 20221123
  Transmission Date: 20230113
  Serious: Yes (Other)
  Sender: FDA-Public Use
  Company Number: US-BRISTOL-MYERS SQUIBB COMPANY-2022-142384

PATIENT
  Age: 49 Year
  Sex: Female

DRUGS (1)
  1. REVLIMID [Suspect]
     Active Substance: LENALIDOMIDE
     Indication: Plasma cell myeloma
     Dosage: EVERY DAY FOR 14 DAYS THEN OFF FOR 7 DAYS
     Route: 048
     Dates: start: 20220421, end: 202208

REACTIONS (3)
  - Neuralgia [Unknown]
  - Thrombosis [Unknown]
  - Off label use [Unknown]
